FAERS Safety Report 9932807 (Version 1)
Quarter: 2014Q1

REPORT INFORMATION
  Report Type: Spontaneous
  Country: US (occurrence: US)
  Receive Date: 20140228
  Receipt Date: 20140228
  Transmission Date: 20141002
  Serious: No
  Sender: FDA-Public Use
  Company Number: US-GLAXOSMITHKLINE-A1045104A

PATIENT
  Sex: Female

DRUGS (3)
  1. IMITREX [Suspect]
     Indication: MIGRAINE
     Dosage: 6MG UNKNOWN
     Route: 065
     Dates: start: 20081209
  2. GSK AUTOINJECTOR [Suspect]
     Indication: MIGRAINE
     Route: 042
  3. IMITREX [Suspect]
     Indication: MIGRAINE
     Dosage: 100MG UNKNOWN
     Route: 065
     Dates: start: 20081209

REACTIONS (3)
  - Migraine [Unknown]
  - Drug administration error [Unknown]
  - Performance status decreased [Unknown]
